FAERS Safety Report 5634730-0 (Version None)
Quarter: 2008Q1

REPORT INFORMATION
  Report Type: 
  Country: None (occurrence: None)
  Receive Date: 20080222
  Receipt Date: 20080213
  Transmission Date: 20080703
  Serious: Yes (Other)
  Sender: FDA-Public Use
  Company Number: US-WYE-H02607408

PATIENT
  Age: 45 Year
  Sex: Male
  Weight: 95.34 kg

DRUGS (1)
  1. PREPARATION H HEMORRHOIDAL SUPPOSITORIES [Suspect]
     Indication: HAEMORRHOIDS
     Route: 054
     Dates: start: 20080211, end: 20080212

REACTIONS (1)
  - ANORECTAL DISCOMFORT [None]
